FAERS Safety Report 23143936 (Version 1)
Quarter: 2023Q4

REPORT INFORMATION
  Report Type: Spontaneous
  Country: US (occurrence: US)
  Receive Date: 20231103
  Receipt Date: 20231103
  Transmission Date: 20240109
  Serious: No
  Sender: FDA-Public Use
  Company Number: US-Merck Healthcare KGaA-2023482084

PATIENT
  Age: 83 Year
  Sex: Male

DRUGS (1)
  1. TEPMETKO [Suspect]
     Active Substance: TEPOTINIB HYDROCHLORIDE
     Indication: Lung neoplasm malignant
     Dosage: AM WITH FOOD
     Route: 048
     Dates: start: 20230802

REACTIONS (2)
  - Oedema peripheral [Not Recovered/Not Resolved]
  - Scrotal oedema [Not Recovered/Not Resolved]
